FAERS Safety Report 7298816-X (Version None)
Quarter: 2011Q1

REPORT INFORMATION
  Report Type: 
  Country: None (occurrence: None)
  Receive Date: 20110217
  Receipt Date: 20110208
  Transmission Date: 20110831
  Serious: Yes (Other)
  Sender: FDA-Public Use
  Company Number: GB-B.I. PHARMACEUTICALS,INC./RIDGEFIELD-2010-BP-08929BP

PATIENT
  Age: 32 Year
  Sex: Female

DRUGS (2)
  1. VIRAMUNE [Suspect]
     Indication: ANTIVIRAL TREATMENT
     Dosage: 400 MG
     Route: 048
  2. EPZICOM [Concomitant]
     Indication: ANTIVIRAL TREATMENT
     Dosage: 1
     Route: 048

REACTIONS (1)
  - ABORTION INDUCED [None]
